FAERS Safety Report 10081804 (Version 1)
Quarter: 2014Q2

REPORT INFORMATION
  Report Type: Spontaneous
  Country: CH (occurrence: CH)
  Receive Date: 20140416
  Receipt Date: 20140416
  Transmission Date: 20141212
  Serious: Yes (Other)
  Sender: FDA-Public Use
  Company Number: PHHY2014CH042277

PATIENT
  Age: 68 Year
  Sex: Female

DRUGS (2)
  1. ROPINIROLE [Suspect]
     Indication: PARKINSON^S DISEASE
     Dosage: 4 MG
  2. LEVODOPA [Concomitant]
     Indication: PARKINSON^S DISEASE
     Dosage: 300 MG PER DAY

REACTIONS (4)
  - Pleurothotonus [Recovered/Resolved]
  - Posture abnormal [Recovered/Resolved]
  - Bradykinesia [Recovered/Resolved]
  - Muscle rigidity [Recovered/Resolved]
